FAERS Safety Report 11253644 (Version 1)
Quarter: 2015Q3

REPORT INFORMATION
  Report Type: Spontaneous
  Country: US (occurrence: None)
  Receive Date: 20150708
  Receipt Date: 20150708
  Transmission Date: 20151125
  Serious: Yes (Life-Threatening, Hospitalization)
  Sender: FDA-Public Use
  Company Number: None

PATIENT
  Age: 80 Year
  Sex: Male
  Weight: 71.3 kg

DRUGS (1)
  1. PIPERACILLIN/TAZOBACTAM [Suspect]
     Active Substance: PIPERACILLIN SODIUM\TAZOBACTAM SODIUM
     Indication: OSTEOMYELITIS
     Route: 042
     Dates: start: 20150615, end: 20150615

REACTIONS (12)
  - Respiratory depression [None]
  - Lactic acidosis [None]
  - Anaphylactic reaction [None]
  - Respiratory acidosis [None]
  - Drug hypersensitivity [None]
  - Urticaria [None]
  - Rash [None]
  - Respiratory distress [None]
  - Tachycardia [None]
  - Pruritus [None]
  - Wheezing [None]
  - Cough [None]

NARRATIVE: CASE EVENT DATE: 20150615
